FAERS Safety Report 9988823 (Version 3)
Quarter: 2014Q3

REPORT INFORMATION
  Report Type: Report from Study
  Country: US (occurrence: None)
  Receive Date: 20131021
  Receipt Date: 20140929
  Transmission Date: 20150326
  Serious: Yes (Other)
  Sender: FDA-Public Use
  Company Number: 2012US000768

PATIENT
  Age: 69 Year
  Sex: Female
  Weight: 67.1 kg

DRUGS (15)
  1. PONATINIB [Suspect]
     Active Substance: PONATINIB
     Indication: CHRONIC MYELOID LEUKAEMIA
     Route: 048
     Dates: start: 20110427
  2. COMPAZINE  (PROCHLORPERAZINE MALEATE) [Concomitant]
  3. DILAUDID [Concomitant]
     Active Substance: HYDROMORPHONE HYDROCHLORIDE
  4. HYDROCORTISONE (HYDROCORTISONE) [Concomitant]
     Active Substance: HYDROCORTISONE
  5. TRIAMCINOLONE ACETONIDE (TRIAMCINOLONE ACETONIDE) [Concomitant]
  6. OXYCODONE (OXYCODONE) [Concomitant]
     Active Substance: OXYCODONE
  7. NEURONTIN [Concomitant]
     Active Substance: GABAPENTIN
  8. ONDANSETRON. [Concomitant]
     Active Substance: ONDANSETRON
  9. PROTONIX (PANTOPRAZOLE SODIUM SESQUILHYDRATE) [Concomitant]
  10. AMBIEN [Concomitant]
     Active Substance: ZOLPIDEM TARTRATE
  11. CALCIUM (CALCIUM) [Concomitant]
     Active Substance: CALCIUM
  12. UREA (UREA) [Concomitant]
  13. BENADRYL [Concomitant]
     Active Substance: DIPHENHYDRAMINE HYDROCHLORIDE
  14. PREDNISONE (PREDNISONE) [Concomitant]
     Active Substance: PREDNISONE
  15. ALDARA (IMIQUIMOD) [Concomitant]

REACTIONS (8)
  - Skin lesion [None]
  - Skin toxicity [None]
  - Fatigue [None]
  - Basal cell carcinoma [None]
  - Platelet count decreased [None]
  - Neutrophil count decreased [None]
  - Petechiae [None]
  - Haemoglobin decreased [None]

NARRATIVE: CASE EVENT DATE: 20120515
